FAERS Safety Report 6465771-1 (Version None)
Quarter: 2009Q4

REPORT INFORMATION
  Report Type: 
  Country: None (occurrence: None)
  Receive Date: 20091124
  Receipt Date: 20091116
  Transmission Date: 20100525
  Serious: Yes (Hospitalization)
  Sender: FDA-Public Use
  Company Number: 220002J09GRC

PATIENT
  Age: 28 Year
  Sex: Male

DRUGS (5)
  1. SAIZEN [Suspect]
     Indication: GROWTH HORMONE DEFICIENCY
     Dosage: SUBCUTANEOUS
     Route: 058
     Dates: start: 20070101, end: 20090101
  2. SALOSPIR (ACETYLSALICYLIC ACID) [Concomitant]
  3. TESTOVIRON (TESTOSTERONE ENANTATE) [Concomitant]
  4. THYROHORMONE (LEVOTHYROXINE SODIUM) [Concomitant]
  5. HYDROCORTIZONE (HYDROCORTISONE /00028601/) [Concomitant]

REACTIONS (4)
  - BLOOD CHOLESTEROL INCREASED [None]
  - BLOOD TRIGLYCERIDES INCREASED [None]
  - HAEMATOCRIT INCREASED [None]
  - ISCHAEMIC STROKE [None]
